FAERS Safety Report 13753535 (Version 2)
Quarter: 2018Q1

REPORT INFORMATION
  Report Type: Spontaneous
  Country: AU (occurrence: AU)
  Receive Date: 20170713
  Receipt Date: 20180322
  Transmission Date: 20180508
  Serious: Yes (Other)
  Sender: FDA-Public Use
  Company Number: AU-009507513-1707AUS001887

PATIENT
  Sex: Male

DRUGS (3)
  1. IMDUR [Concomitant]
     Active Substance: ISOSORBIDE MONONITRATE
  2. JANUMET [Suspect]
     Active Substance: METFORMIN HYDROCHLORIDE\SITAGLIPTIN PHOSPHATE
     Dosage: UNK
     Route: 048
  3. MINAX [Concomitant]
     Active Substance: METOPROLOL
     Route: 048

REACTIONS (2)
  - Carcinoembryonic antigen increased [Unknown]
  - Neoplasm progression [Unknown]
